FAERS Safety Report 19565088 (Version 2)
Quarter: 2021Q3

REPORT INFORMATION
  Report Type: Spontaneous
  Country: RO (occurrence: RO)
  Receive Date: 20210716
  Receipt Date: 20210727
  Transmission Date: 20211014
  Serious: Yes (Life-Threatening, Hospitalization, Other)
  Sender: FDA-Public Use
  Company Number: RO-MYLANLABS-2021M1042556

PATIENT
  Age: 66 Year
  Sex: Female

DRUGS (17)
  1. MIRTAZAPINE. [Suspect]
     Active Substance: MIRTAZAPINE
     Indication: DEPRESSION
  2. BROMAZEPAM [Suspect]
     Active Substance: BROMAZEPAM
     Indication: DEPRESSION
  3. RISPERIDONE. [Concomitant]
     Active Substance: RISPERIDONE
     Indication: PSYCHOTIC DISORDER
     Dosage: 5 MILLILITER, QD
  4. OLANZAPINE. [Suspect]
     Active Substance: OLANZAPINE
     Indication: DEPRESSION
     Dosage: UNK
     Dates: start: 2018
  5. LORAZEPAM. [Suspect]
     Active Substance: LORAZEPAM
     Indication: PRODUCT USED FOR UNKNOWN INDICATION
     Dosage: UNK (INGESTED 150 TABLETS OF ZOPICLONA, LORAZEPAM AND NEBIVOLOL)
     Route: 048
  6. LORAZEPAM. [Suspect]
     Active Substance: LORAZEPAM
     Dosage: 1 MILLIGRAM, BID
     Dates: start: 2012
  7. OLANZAPINE. [Suspect]
     Active Substance: OLANZAPINE
     Indication: PSYCHOTIC DISORDER
  8. MIRTAZAPINE. [Suspect]
     Active Substance: MIRTAZAPINE
     Indication: PSYCHOTIC DISORDER
  9. BROMAZEPAM [Suspect]
     Active Substance: BROMAZEPAM
     Indication: PSYCHOTIC DISORDER
     Dosage: 1.5 MILLIGRAM, BID
     Route: 065
     Dates: start: 201205
  10. BROMAZEPAM [Concomitant]
     Active Substance: BROMAZEPAM
     Dosage: 1.5 MG, 2X PER DAY
     Dates: start: 201205
  11. MIRTAZAPINE. [Suspect]
     Active Substance: MIRTAZAPINE
     Indication: MIXED ANXIETY AND DEPRESSIVE DISORDER
     Dosage: 30 MILLIGRAM DAILY; 30 MG/DAY
     Route: 065
     Dates: start: 201205
  12. NEBIVOLOL. [Suspect]
     Active Substance: NEBIVOLOL
     Indication: PRODUCT USED FOR UNKNOWN INDICATION
     Dosage: UNK (INGESTED 150 TABLETS OF ZOPICLONA, LORAZEPAM AND NEBIVOLOL)
     Route: 048
  13. OLANZAPINE. [Suspect]
     Active Substance: OLANZAPINE
     Indication: MIXED ANXIETY AND DEPRESSIVE DISORDER
     Dosage: 15 MILLIGRAM DAILY; 15 MG/DAY
     Route: 065
     Dates: start: 201205
  14. LORAZEPAM. [Concomitant]
     Active Substance: LORAZEPAM
     Indication: DEPRESSION
  15. ZOPICLONA [Suspect]
     Active Substance: ZOPICLONE
     Indication: PRODUCT USED FOR UNKNOWN INDICATION
     Dosage: UNK (INGESTED 150 TABLETS OF ZOPICLONA, LORAZEPAM AND NEBIVOLOL)
     Route: 048
  16. RISPERIDONE. [Concomitant]
     Active Substance: RISPERIDONE
     Indication: DEPRESSION
  17. LORAZEPAM. [Concomitant]
     Active Substance: LORAZEPAM
     Indication: PSYCHOTIC DISORDER
     Dosage: 1MG, 1CPX2/DAY

REACTIONS (14)
  - Affect lability [Unknown]
  - Intentional overdose [Unknown]
  - Intentional self-injury [Unknown]
  - Anxiety [Unknown]
  - Affective disorder [Unknown]
  - Crying [Unknown]
  - Persecutory delusion [Unknown]
  - Drug intolerance [Unknown]
  - Helplessness [Unknown]
  - Toxicity to various agents [Unknown]
  - Mood altered [Unknown]
  - Insomnia [Unknown]
  - Feeling abnormal [Unknown]
  - Feelings of worthlessness [Unknown]
